FAERS Safety Report 9462049 (Version 1)
Quarter: 2013Q3

REPORT INFORMATION
  Report Type: Spontaneous
  Country: US (occurrence: US)
  Receive Date: 20130816
  Receipt Date: 20130816
  Transmission Date: 20140515
  Serious: Yes (Hospitalization)
  Sender: FDA-Public Use
  Company Number: US-MYLANLABS-2013S1017494

PATIENT
  Sex: Male

DRUGS (5)
  1. LEVETIRACETAM [Suspect]
     Indication: CONVULSION
     Dates: start: 201211, end: 2013
  2. LEVETIRACETAM [Suspect]
     Indication: CONVULSION
     Dates: start: 201307
  3. LISINOPRIL [Concomitant]
     Indication: BLOOD PRESSURE INCREASED
  4. PROZAC [Concomitant]
     Indication: DEPRESSION
     Dates: end: 2013
  5. LITHIUM [Concomitant]
     Indication: BIPOLAR DISORDER

REACTIONS (4)
  - Convulsion [Recovered/Resolved]
  - Convulsion [Recovered/Resolved]
  - Amnesia [Not Recovered/Not Resolved]
  - Mental status changes [Not Recovered/Not Resolved]
